FAERS Safety Report 16332570 (Version 1)
Quarter: 2019Q2

REPORT INFORMATION
  Report Type: Spontaneous
  Country: US (occurrence: US)
  Receive Date: 20190413
  Receipt Date: 20190413
  Transmission Date: 20190711
  Serious: No
  Sender: FDA-Public Use
  Company Number: None

PATIENT
  Age: 66 Year
  Sex: Male

DRUGS (1)
  1. SIROLIMUS TAB 1 MG [Suspect]
     Active Substance: SIROLIMUS

REACTIONS (2)
  - Dry skin [None]
  - Pruritus [None]

NARRATIVE: CASE EVENT DATE: 20190413
